FAERS Safety Report 25177844 (Version 2)
Quarter: 2025Q2

REPORT INFORMATION
  Report Type: Spontaneous
  Country: US (occurrence: US)
  Receive Date: 20250409
  Receipt Date: 20250515
  Transmission Date: 20250716
  Serious: No
  Sender: PHARMASCIENCE
  Company Number: US-Pharmascience Inc.-2174485

PATIENT
  Sex: Male

DRUGS (1)
  1. BUSULFAN [Suspect]
     Active Substance: BUSULFAN
     Indication: Stem cell transplant

REACTIONS (5)
  - Poor quality product administered [Unknown]
  - Product contamination physical [Unknown]
  - Product preparation error [Unknown]
  - Product quality issue [Unknown]
  - Product deposit [Unknown]
